FAERS Safety Report 17433595 (Version 1)
Quarter: 2020Q1

REPORT INFORMATION
  Report Type: Spontaneous
  Country: US (occurrence: US)
  Receive Date: 20190910
  Receipt Date: 20190910
  Transmission Date: 20200409
  Serious: Yes (Life-Threatening, Hospitalization, Other)
  Sender: FDA-Public Use
  Company Number: None

PATIENT
  Age: 21 Year
  Sex: Male

DRUGS (1)
  1. MARIJUANA VAPING LIQUID [Suspect]
     Active Substance: CANNABIS SATIVA SUBSP. INDICA TOP\DEVICE

REACTIONS (4)
  - Traumatic lung injury [None]
  - Lung infiltration [None]
  - Hypoxia [None]
  - Respiratory failure [None]

NARRATIVE: CASE EVENT DATE: 20190821
